FAERS Safety Report 8188409-4 (Version None)
Quarter: 2012Q1

REPORT INFORMATION
  Report Type: 
  Country: None (occurrence: None)
  Receive Date: 20120306
  Receipt Date: 20120224
  Transmission Date: 20120608
  Serious: Yes (Other)
  Sender: FDA-Public Use
  Company Number: PHFR2012GB001018

PATIENT
  Sex: Male

DRUGS (3)
  1. ARIPIPRAZOLE [Concomitant]
     Dosage: 20 MG, DAILY
     Route: 048
  2. CLOZARIL [Suspect]
     Indication: SCHIZOPHRENIA
     Route: 048
     Dates: start: 20120130
  3. CLOZARIL [Suspect]
     Dosage: 125 MG, DAILY
     Route: 048
     Dates: start: 20120201

REACTIONS (8)
  - MALAISE [None]
  - RASH [None]
  - LOWER RESPIRATORY TRACT INFECTION [None]
  - MYOCARDITIS [None]
  - UPPER RESPIRATORY TRACT INFECTION [None]
  - ELECTROCARDIOGRAM ABNORMAL [None]
  - INFLUENZA LIKE ILLNESS [None]
  - TACHYCARDIA [None]
